FAERS Safety Report 7672345-3 (Version None)
Quarter: 2011Q3

REPORT INFORMATION
  Report Type: 
  Country: None (occurrence: None)
  Receive Date: 20110809
  Receipt Date: 20110729
  Transmission Date: 20111222
  Serious: Yes (Hospitalization, Other)
  Sender: FDA-Public Use
  Company Number: FR-JNJFOC-20110801535

PATIENT
  Sex: Female

DRUGS (7)
  1. LOVENOX [Suspect]
     Indication: ILL-DEFINED DISORDER
     Dates: start: 20110620
  2. LOVENOX [Suspect]
     Dates: start: 20110520, end: 20110521
  3. BETAMETHASONE [Concomitant]
     Indication: ILL-DEFINED DISORDER
  4. NEXIUM [Concomitant]
     Indication: ILL-DEFINED DISORDER
  5. PREDNISOLONE [Concomitant]
     Indication: ILL-DEFINED DISORDER
  6. CIMZIA [Concomitant]
     Indication: RHEUMATOID ARTHRITIS
  7. XARELTO [Suspect]
     Indication: THROMBOSIS PROPHYLAXIS
     Route: 048
     Dates: start: 20110521, end: 20110524

REACTIONS (2)
  - HAEMOGLOBIN DECREASED [None]
  - VENOUS THROMBOSIS [None]
